FAERS Safety Report 5370252-2 (Version None)
Quarter: 2007Q2

REPORT INFORMATION
  Report Type: 
  Country: None (occurrence: None)
  Receive Date: 20070625
  Receipt Date: 20070625
  Transmission Date: 20071010
  Serious: Yes (Life-Threatening, Hospitalization, Disabling)
  Sender: FDA-Public Use
  Company Number: None

PATIENT
  Age: 55 Year
  Sex: Male
  Weight: 122.4712 kg

DRUGS (1)
  1. ENEMEEZ MINI ENEMA [Suspect]
     Indication: SPINAL CORD INJURY

REACTIONS (6)
  - DECUBITUS ULCER [None]
  - IMPAIRED HEALING [None]
  - INJURY [None]
  - PHARMACEUTICAL PRODUCT COMPLAINT [None]
  - RECTAL ABSCESS [None]
  - RECTAL PERFORATION [None]
